FAERS Safety Report 9988313 (Version 1)
Quarter: 2014Q1

REPORT INFORMATION
  Report Type: Spontaneous
  Country: GB (occurrence: GB)
  Receive Date: 20140310
  Receipt Date: 20140310
  Transmission Date: 20141002
  Serious: Yes (Life-Threatening, Hospitalization)
  Sender: FDA-Public Use
  Company Number: PHHY2014GB022380

PATIENT
  Age: 89 Year
  Sex: Female
  Weight: 47 kg

DRUGS (7)
  1. DIHYDROCODEINE [Suspect]
     Indication: PAIN
     Dosage: 30 MG, UNK
     Route: 048
     Dates: start: 20140204, end: 20140209
  2. MIRTAZAPINE [Suspect]
     Indication: DEPRESSION
     Dosage: 15 MG, UNK
     Route: 048
     Dates: start: 20140209, end: 20140209
  3. CLOPIDOGREL [Concomitant]
  4. LIDOCAINE [Concomitant]
  5. NITROFURANTOIN [Concomitant]
  6. PARACETAMOL [Concomitant]
  7. SIMVASTATIN [Concomitant]

REACTIONS (1)
  - Anaphylactic reaction [Recovered/Resolved]
